FAERS Safety Report 16556260 (Version 1)
Quarter: 2019Q3

REPORT INFORMATION
  Report Type: Spontaneous
  Country: US (occurrence: US)
  Receive Date: 20190710
  Receipt Date: 20190710
  Transmission Date: 20191004
  Serious: No
  Sender: FDA-Public Use
  Company Number: US-AYTU BIOSCIENCES, INC.-2018AYT000081

PATIENT

DRUGS (1)
  1. NATESTO [Suspect]
     Active Substance: TESTOSTERONE
     Indication: BLOOD TESTOSTERONE DECREASED
     Dosage: 1 ACTUATION IN BOTH NOSTRILS, TID
     Route: 045
     Dates: start: 201805

REACTIONS (1)
  - Pollakiuria [Unknown]
